FAERS Safety Report 26118417 (Version 1)
Quarter: 2025Q4

REPORT INFORMATION
  Report Type: Spontaneous
  Country: MY (occurrence: MY)
  Receive Date: 20251203
  Receipt Date: 20251203
  Transmission Date: 20260118
  Serious: Yes (Other)
  Sender: Harrow Health
  Company Number: MY-Novartis Pharma-NVSC2025MY179639

PATIENT
  Age: 39 Year
  Sex: Female

DRUGS (5)
  1. VIGAMOX [Suspect]
     Active Substance: MOXIFLOXACIN HYDROCHLORIDE
     Indication: Eye pain
     Dosage: UNK (TOPICAL)
     Route: 050
  2. VIGAMOX [Suspect]
     Active Substance: MOXIFLOXACIN HYDROCHLORIDE
     Indication: Erythema
  3. VIGAMOX [Suspect]
     Active Substance: MOXIFLOXACIN HYDROCHLORIDE
     Indication: Lacrimation increased
  4. VIGAMOX [Suspect]
     Active Substance: MOXIFLOXACIN HYDROCHLORIDE
     Indication: Foreign body sensation in eyes
  5. NEODECADRON [Suspect]
     Active Substance: DEXAMETHASONE SODIUM PHOSPHATE\NEOMYCIN SULFATE
     Indication: Product used for unknown indication

REACTIONS (10)
  - Corneal dystrophy [Not Recovered/Not Resolved]
  - Keratitis fungal [Not Recovered/Not Resolved]
  - Mycobacterium abscessus infection [Recovering/Resolving]
  - Hypopyon [Not Recovered/Not Resolved]
  - Anterior chamber cell [Not Recovered/Not Resolved]
  - Conjunctival hyperaemia [Not Recovered/Not Resolved]
  - Condition aggravated [Not Recovered/Not Resolved]
  - Corneal infiltrates [Recovering/Resolving]
  - Corneal infiltrates [Not Recovered/Not Resolved]
  - Drug ineffective [Not Recovered/Not Resolved]
